FAERS Safety Report 6309100-2 (Version None)
Quarter: 2009Q3

REPORT INFORMATION
  Report Type: 
  Country: None (occurrence: None)
  Receive Date: 20090807
  Receipt Date: 20090727
  Transmission Date: 20100115
  Serious: Yes (Hospitalization)
  Sender: FDA-Public Use
  Company Number: 232970K08USA

PATIENT
  Age: 39 Year
  Sex: Female
  Weight: 44 kg

DRUGS (5)
  1. REBIF [Suspect]
     Indication: MULTIPLE SCLEROSIS
     Dosage: 44 MCG, 3 IN 1 WEEKS, SUBCUTANEOUS
     Route: 058
     Dates: start: 20081021, end: 20090518
  2. DILANTIN (PHENYTOIN /00017401/) [Concomitant]
  3. INSULIN (INSULIN /00030501/) [Concomitant]
  4. REMERON [Concomitant]
  5. CALCIUM/VITAMIN D (CALCIUM WITH VITAMIN D) [Concomitant]

REACTIONS (6)
  - APHASIA [None]
  - ENCEPHALOPATHY [None]
  - HEMIPARESIS [None]
  - HYPERTENSION [None]
  - PARTIAL SEIZURES [None]
  - PYREXIA [None]
